FAERS Safety Report 23607158 (Version 2)
Quarter: 2024Q1

REPORT INFORMATION
  Report Type: Report from Study
  Country: US (occurrence: US)
  Receive Date: 20240307
  Receipt Date: 20240313
  Transmission Date: 20240410
  Serious: No
  Sender: FDA-Public Use
  Company Number: US-SANDOZ-SDZ2024US023806

PATIENT
  Sex: Male

DRUGS (4)
  1. OMNITROPE [Suspect]
     Active Substance: SOMATROPIN
     Indication: Short stature
     Dosage: 1.2 MG, QD
     Route: 058
     Dates: start: 20240229
  2. OMNITROPE [Suspect]
     Active Substance: SOMATROPIN
     Indication: Short stature
     Dosage: 1.2 MG, QD
     Route: 058
     Dates: start: 20240229
  3. OMNITROPE [Suspect]
     Active Substance: SOMATROPIN
     Dosage: 1.6 MG (MILLIGRAM) ONCE DAILY/ 1.2MG DAILY X 2 WEEKS, THEN 1.6MG DAILY
     Route: 058
     Dates: start: 20240229
  4. OMNITROPE [Suspect]
     Active Substance: SOMATROPIN
     Dosage: 1.6 MG (MILLIGRAM) ONCE DAILY/ 1.2MG DAILY X 2 WEEKS, THEN 1.6MG DAILY
     Route: 058
     Dates: start: 20240229

REACTIONS (2)
  - Needle issue [Unknown]
  - Circumstance or information capable of leading to device use error [Unknown]
